FAERS Safety Report 18665338 (Version 4)
Quarter: 2022Q4

REPORT INFORMATION
  Report Type: Spontaneous
  Country: US (occurrence: US)
  Receive Date: 20201225
  Receipt Date: 20221126
  Transmission Date: 20230113
  Serious: Yes (Hospitalization)
  Sender: FDA-Public Use
  Company Number: US-TEVA-2020-US-1852739

PATIENT
  Age: 54 Year
  Sex: Female

DRUGS (4)
  1. TREPROSTINIL [Suspect]
     Active Substance: TREPROSTINIL
     Indication: Pulmonary arterial hypertension
     Dosage: DOSE: 80 NG/KG/MIN
     Route: 042
     Dates: start: 20190704
  2. TREPROSTINIL [Suspect]
     Active Substance: TREPROSTINIL
     Dosage: DOSE: 80 NG/KG/MIN
     Route: 042
     Dates: start: 20190814
  3. TREPROSTINIL [Suspect]
     Active Substance: TREPROSTINIL
     Dosage: 80NG/KG/MIN, CONTINUOUS
     Route: 042
     Dates: start: 20200415
  4. TREPROSTINIL [Suspect]
     Active Substance: TREPROSTINIL
     Dosage: 78 NG/KG/MIN, 5 MG/ML
     Route: 042
     Dates: start: 20200414

REACTIONS (8)
  - Pneumonia [Unknown]
  - Weight decreased [Unknown]
  - Headache [Unknown]
  - Abdominal pain upper [Unknown]
  - Vomiting [Unknown]
  - Decreased appetite [Unknown]
  - Overdose [Unknown]
  - Dyspnoea [Unknown]

NARRATIVE: CASE EVENT DATE: 20201101
